FAERS Safety Report 9439906 (Version 3)
Quarter: 2013Q3

REPORT INFORMATION
  Report Type: Spontaneous
  Country: US (occurrence: US)
  Receive Date: 20130805
  Receipt Date: 20130821
  Transmission Date: 20140515
  Serious: Yes (Other)
  Sender: FDA-Public Use
  Company Number: US-PFIZER INC-2013226166

PATIENT
  Age: 55 Year
  Sex: Female
  Weight: 59.8 kg

DRUGS (29)
  1. NICOTROL NASAL SPRAY [Suspect]
     Indication: SMOKING CESSATION THERAPY
     Dosage: 10MG/1ML NASAL SPRAY USE 1 TO 2 SPRAY(S) IN EACH NOSTRIL, EVERY 3H
     Route: 045
     Dates: start: 20130219, end: 20130715
  2. NICOTROL NASAL SPRAY [Suspect]
     Dosage: UNK, 7-8 TIMES A DAY
     Dates: start: 20130729
  3. NEXIUM [Concomitant]
     Dosage: 40 MG, 2X/DAY
     Route: 048
  4. PEPTO-BISMOL [Concomitant]
     Dosage: UNK
  5. ENABLEX [Concomitant]
     Dosage: 7.5 MG, 1-2 TABLETS DAILY
     Route: 048
  6. LEVOTHYROXINE SODIUM [Concomitant]
     Dosage: 0.088 MG, DAILY
     Route: 048
  7. PROMETHAZINE HYDROCHLORIDE [Concomitant]
     Indication: NAUSEA
     Dosage: 25 MG TABLET ,1 TABLETS  EVERY 4-6H, PRN
     Route: 048
  8. PROMETHAZINE HYDROCHLORIDE [Concomitant]
     Indication: VOMITING
  9. CLONIDINE HYDROCHLORIDE [Concomitant]
     Dosage: 0.1 MG TABLET,1 TABLETS QHS PRN
     Route: 048
  10. XYZAL [Concomitant]
     Dosage: 5 MG, EACH EVENING
     Route: 048
  11. NEURONTIN [Concomitant]
     Dosage: 600MG TABLET, 2 IN THE MORNING AND 1 IN THE AFTERNOON
     Route: 048
  12. TRILIPIX [Concomitant]
     Dosage: 135MG, DAILY
     Route: 048
  13. MAGNESIUM OXIDE [Concomitant]
     Dosage: 400 MG, 2X/DAY
     Route: 048
  14. PROZAC [Concomitant]
     Dosage: 20 MG, EVERY MORNING (QAM)
     Route: 048
  15. COREG CR [Concomitant]
     Dosage: 20 MG, DAILY IN THE MORNING WITH FOOD
     Route: 048
  16. LIVALO [Concomitant]
     Dosage: 4 MG, EVERY MORNING (QAM)
     Route: 048
  17. NORVASC [Concomitant]
     Dosage: 5 MG, DAILY
     Route: 048
  18. VALTREX [Concomitant]
     Dosage: 500 MG, 2X/DAY
     Route: 048
  19. KLOR-CON 10 [Concomitant]
     Dosage: 10 MEQ, 2X/DAY PRN
     Route: 048
  20. PLAVIX [Concomitant]
     Dosage: 75 MG, ALTERNATE DAY
     Route: 048
  21. RESTORIL [Concomitant]
     Dosage: 15MG CAPSULES, 1-2 CAPSULE, QHS PRN
     Route: 048
  22. OSPHENA [Concomitant]
     Dosage: 60 MG, DAILY WITH FOOD
     Route: 048
  23. VALIUM [Concomitant]
     Dosage: 10 MG, 2X/DAY PRN
     Route: 048
  24. VITAMIN D2 [Concomitant]
     Dosage: 50000 IU, WEEKLY
     Route: 048
  25. ACETAZOLAMIDE [Concomitant]
     Dosage: 250 MG, EVERY MORNING (QAM)
     Route: 048
  26. VITAMIN B12 [Concomitant]
     Dosage: 1000 UG, DAILY
     Route: 048
  27. LIDOCAINE [Concomitant]
     Dosage: 4% NASAL SPRAY 2 PUFFS (USE SPARINGLY), 4X/DAY PRN
     Route: 045
  28. ZETIA [Concomitant]
     Dosage: 10 MG, DAILY
     Route: 048
  29. FISH OIL [Concomitant]
     Dosage: 3000 MG (1000 MG 3 CAPSULES), UNK

REACTIONS (19)
  - Type 2 diabetes mellitus [Unknown]
  - Coronary artery disease [Unknown]
  - Gastrooesophageal reflux disease [Recovered/Resolved]
  - Sensation of foreign body [Not Recovered/Not Resolved]
  - Throat irritation [Recovered/Resolved]
  - Dysphagia [Recovered/Resolved]
  - Anxiety [Unknown]
  - Depression [Unknown]
  - Hyperhidrosis [Unknown]
  - Fatigue [Unknown]
  - Temperature intolerance [Unknown]
  - Hypercholesterolaemia [Unknown]
  - Hypothyroidism [Unknown]
  - Back pain [Unknown]
  - Nasal disorder [Unknown]
  - Sinus disorder [Unknown]
  - Neuropathy peripheral [Unknown]
  - Peripheral vascular disorder [Unknown]
  - Vitamin D deficiency [Unknown]
